FAERS Safety Report 15781239 (Version 2)
Quarter: 2019Q2

REPORT INFORMATION
  Report Type: Spontaneous
  Country: US (occurrence: US)
  Receive Date: 20190102
  Receipt Date: 20190624
  Transmission Date: 20190711
  Serious: No
  Sender: FDA-Public Use
  Company Number: US-SA-2018SA395640

PATIENT
  Sex: Female

DRUGS (1)
  1. CERDELGA [Suspect]
     Active Substance: ELIGLUSTAT
     Indication: PRODUCT USED FOR UNKNOWN INDICATION
     Dosage: UNK;  168MG EVERY MORNING AND 84MG EVERY EVENING.
     Route: 048
     Dates: start: 20170117

REACTIONS (2)
  - Memory impairment [Unknown]
  - Product dose omission [Unknown]
